FAERS Safety Report 6540836-4 (Version None)
Quarter: 2010Q1

REPORT INFORMATION
  Report Type: 
  Country: None (occurrence: None)
  Receive Date: 20100118
  Receipt Date: 20100104
  Transmission Date: 20100710
  Serious: Yes (Other)
  Sender: FDA-Public Use
  Company Number: PHEH2010US00445

PATIENT
  Sex: Female

DRUGS (1)
  1. DIOVAN [Suspect]
     Dosage: UNK

REACTIONS (5)
  - EYE SWELLING [None]
  - NASAL CONGESTION [None]
  - OEDEMA MOUTH [None]
  - SWELLING FACE [None]
  - SWOLLEN TONGUE [None]
